FAERS Safety Report 7406406-0 (Version None)
Quarter: 2011Q2

REPORT INFORMATION
  Report Type: 
  Country: None (occurrence: None)
  Receive Date: 20110405
  Receipt Date: 20110405
  Transmission Date: 20111010
  Serious: Yes (Life-Threatening, Hospitalization)
  Sender: FDA-Public Use
  Company Number: None

PATIENT
  Age: 88 Year
  Sex: Male
  Weight: 101 kg

DRUGS (2)
  1. METOLAZONE [Suspect]
     Indication: OEDEMA
     Dosage: PO 2-4 WEEKS
     Route: 048
  2. PRADAXA [Suspect]
     Indication: ATRIAL FIBRILLATION
     Dosage: 75MG BID PO
     Route: 048

REACTIONS (4)
  - HYPOTENSION [None]
  - ASTHENIA [None]
  - FAECES DISCOLOURED [None]
  - RENAL FAILURE ACUTE [None]
